FAERS Safety Report 14491457 (Version 1)
Quarter: 2018Q1

REPORT INFORMATION
  Report Type: Spontaneous
  Country: US (occurrence: US)
  Receive Date: 20180206
  Receipt Date: 20180206
  Transmission Date: 20180509
  Serious: Yes (Death)
  Sender: FDA-Public Use
  Company Number: US-BAYER-2018-016796

PATIENT
  Sex: Female
  Weight: 68 kg

DRUGS (2)
  1. BAYER ASPIRIN [Suspect]
     Active Substance: ASPIRIN
     Indication: PAIN
     Dosage: 24 DF, QD
  2. BAYER ASPIRIN [Suspect]
     Active Substance: ASPIRIN
     Indication: RHEUMATOID ARTHRITIS
     Dosage: UNK
     Route: 065

REACTIONS (7)
  - Incorrect drug administration duration [Unknown]
  - Off label use [None]
  - Product use issue [None]
  - Incorrect dosage administered [None]
  - Overdose [None]
  - Death [Fatal]
  - Product use in unapproved indication [Unknown]
